FAERS Safety Report 12693755 (Version 2)
Quarter: 2016Q3

REPORT INFORMATION
  Report Type: Spontaneous
  Country: US (occurrence: US)
  Receive Date: 20160829
  Receipt Date: 20160915
  Transmission Date: 20161109
  Serious: No
  Sender: FDA-Public Use
  Company Number: US-PFIZER INC-2016378227

PATIENT
  Age: 13 Year
  Sex: Male

DRUGS (2)
  1. GENOTROPIN [Suspect]
     Active Substance: SOMATROPIN
     Indication: DWARFISM
     Dosage: 1.6 MG, DAILY
     Route: 058
     Dates: start: 20150722
  2. NAFTIFINE [Concomitant]
     Active Substance: NAFTIFINE
     Dosage: UNK

REACTIONS (2)
  - Headache [Unknown]
  - Malaise [Unknown]
